FAERS Safety Report 10084399 (Version 1)
Quarter: 2014Q2

REPORT INFORMATION
  Report Type: Spontaneous
  Country: AU (occurrence: AU)
  Receive Date: 20140417
  Receipt Date: 20140417
  Transmission Date: 20141212
  Serious: Yes (Death)
  Sender: FDA-Public Use
  Company Number: AU-ACTELION-A-CH2014-97559

PATIENT
  Age: 81 Year
  Sex: Female

DRUGS (12)
  1. TRACLEER [Suspect]
     Indication: PULMONARY ARTERIAL HYPERTENSION
     Dosage: UNK
     Route: 048
     Dates: end: 20140410
  2. NIFEDIPINE [Concomitant]
  3. THYROXINE [Concomitant]
  4. CRESTOR [Concomitant]
  5. ASPIRIN [Concomitant]
  6. CALTRATE PLUS [Concomitant]
  7. SILDENAFIL [Concomitant]
  8. SERETIDE [Concomitant]
  9. LACTULOSE [Concomitant]
  10. OMEPRAZOLE [Concomitant]
  11. MOTILIUM [Concomitant]
  12. SPIRONOLACTONE [Concomitant]

REACTIONS (1)
  - Death [Fatal]
